FAERS Safety Report 7014741-3 (Version None)
Quarter: 2010Q3

REPORT INFORMATION
  Report Type: 
  Country: None (occurrence: None)
  Receive Date: 20100927
  Receipt Date: 20100923
  Transmission Date: 20110219
  Serious: Yes (Death, Hospitalization)
  Sender: FDA-Public Use
  Company Number: PHHY2010MX27868

PATIENT
  Sex: Female

DRUGS (2)
  1. FEMARA [Suspect]
     Indication: BREAST CANCER
     Dosage: 1 TABLET (2.5 MG) PER DAY
     Route: 048
     Dates: start: 20040101
  2. INSULIN [Concomitant]

REACTIONS (1)
  - DIABETIC COMPLICATION [None]
